FAERS Safety Report 15552588 (Version 3)
Quarter: 2018Q4

REPORT INFORMATION
  Report Type: Spontaneous
  Country: US (occurrence: US)
  Receive Date: 20181025
  Receipt Date: 20181203
  Transmission Date: 20190205
  Serious: Yes (Death, Life-Threatening, Hospitalization)
  Sender: FDA-Public Use
  Company Number: US-LA JOLLA PHARMACEUTICAL COMPANY-0000268

PATIENT
  Sex: Female

DRUGS (8)
  1. SODIUM ACETATE. [Concomitant]
     Active Substance: SODIUM ACETATE
     Dosage: UNK
  2. FENTANYL. [Concomitant]
     Active Substance: FENTANYL
     Dosage: UNK
  3. NOREPINEPHRINE. [Concomitant]
     Active Substance: NOREPINEPHRINE
     Dosage: 40 UNK, UNK
  4. GIAPREZA [Suspect]
     Active Substance: ANGIOTENSIN II
     Indication: SEPTIC SHOCK
     Dosage: 25 NG/KG/MIN, UNK
     Dates: start: 20181008, end: 20181009
  5. VASOPRESSIN. [Concomitant]
     Active Substance: VASOPRESSIN
     Dosage: 2 UNIT/HR
  6. PANTOPRAZOLE [Concomitant]
     Active Substance: PANTOPRAZOLE
     Dosage: UNK
  7. PROPOFOL. [Concomitant]
     Active Substance: PROPOFOL
     Dosage: UNK
  8. ATRACURIUM [Concomitant]
     Active Substance: ATRACURIUM

REACTIONS (2)
  - Blood glucose decreased [Unknown]
  - Portal vein thrombosis [Fatal]

NARRATIVE: CASE EVENT DATE: 20181008
